FAERS Safety Report 6949327-X (Version None)
Quarter: 2010Q3

REPORT INFORMATION
  Report Type: 
  Country: None (occurrence: None)
  Receive Date: 20100828
  Receipt Date: 20091221
  Transmission Date: 20110219
  Serious: No
  Sender: FDA-Public Use
  Company Number: US-ABBOTT-09P-163-0615569-00

PATIENT
  Sex: Female
  Weight: 88.53 kg

DRUGS (1)
  1. NIASPAN [Suspect]
     Indication: BLOOD CHOLESTEROL INCREASED
     Dosage: AT NIGHT
     Dates: start: 20091201

REACTIONS (4)
  - CHILLS [None]
  - FLUSHING [None]
  - HEAT RASH [None]
  - NAUSEA [None]
